FAERS Safety Report 16627463 (Version 1)
Quarter: 2019Q3

REPORT INFORMATION
  Report Type: Spontaneous
  Country: CA (occurrence: CA)
  Receive Date: 20190724
  Receipt Date: 20190724
  Transmission Date: 20191004
  Serious: Yes (Other)
  Sender: FDA-Public Use
  Company Number: CA-TEVA-2019-CA-1069450

PATIENT
  Age: 60 Year
  Sex: Male

DRUGS (16)
  1. BOSENTAN MONOHYDRATE [Suspect]
     Active Substance: BOSENTAN
     Route: 065
  2. IRON [Concomitant]
     Active Substance: IRON
  3. VITAMIN C [Concomitant]
     Active Substance: ASCORBIC ACID
  4. SILDENAFIL CITRATE. [Suspect]
     Active Substance: SILDENAFIL CITRATE
     Indication: PULMONARY HYPERTENSION
     Dosage: 60 MILLIGRAM DAILY;
     Route: 048
  5. BISOPROLOL [Concomitant]
     Active Substance: BISOPROLOL
  6. RIVAROXABAN [Concomitant]
     Active Substance: RIVAROXABAN
  7. BURINEX [Concomitant]
     Active Substance: BUMETANIDE
  8. ATORVASTATIN [Concomitant]
     Active Substance: ATORVASTATIN
  9. VITAMIN B12 [Concomitant]
     Active Substance: CYANOCOBALAMIN
  10. BOSENTAN MONOHYDRATE [Suspect]
     Active Substance: BOSENTAN
     Indication: PRODUCT USED FOR UNKNOWN INDICATION
     Route: 065
  11. DOCUSATE SODIUM. [Concomitant]
     Active Substance: DOCUSATE SODIUM
  12. SPIRONOLACTONE. [Concomitant]
     Active Substance: SPIRONOLACTONE
  13. METOPROLOL. [Concomitant]
     Active Substance: METOPROLOL
  14. CITALOPRAM [Concomitant]
     Active Substance: CITALOPRAM HYDROBROMIDE
  15. PANTOPRAZOLE [Concomitant]
     Active Substance: PANTOPRAZOLE
  16. VIT D [Concomitant]
     Active Substance: VITAMIN D NOS

REACTIONS (4)
  - Dyspnoea [Not Recovered/Not Resolved]
  - Drug ineffective [Not Recovered/Not Resolved]
  - Malaise [Not Recovered/Not Resolved]
  - Pulmonary oedema [Not Recovered/Not Resolved]
